FAERS Safety Report 4796244-X (Version None)
Quarter: 2005Q4

REPORT INFORMATION
  Report Type: 
  Country: None (occurrence: None)
  Receive Date: 20051005
  Receipt Date: 20051005
  Transmission Date: 20060501
  Serious: No
  Sender: FDA-Public Use
  Company Number: None

PATIENT
  Age: 77 Year
  Sex: Female
  Weight: 122 kg

DRUGS (11)
  1. DIPRIVAN [Suspect]
     Dosage: 10 ML /HR IV 35 ML /HR IV
     Route: 042
     Dates: start: 20050908
  2. DIPRIVAN [Suspect]
     Dosage: 10 ML /HR IV 35 ML /HR IV
     Route: 042
     Dates: start: 20050909
  3. PROTONIX [Concomitant]
  4. ENOXAPARIN SODIUM [Concomitant]
  5. FENTANYL TRANSDERMAL SYSTEM [Concomitant]
  6. INSULIN [Concomitant]
  7. POTASSIUM CHLORIDE [Concomitant]
  8. TPN [Concomitant]
  9. LEVOFLOXACIN [Concomitant]
  10. PRIMAXIN [Concomitant]
  11. HYDROMORPHONE [Concomitant]

REACTIONS (2)
  - BRADYCARDIA [None]
  - HYPOTENSION [None]
